FAERS Safety Report 7180023-2 (Version None)
Quarter: 2010Q4

REPORT INFORMATION
  Report Type: 
  Country: None (occurrence: None)
  Receive Date: 20101221
  Receipt Date: 20101209
  Transmission Date: 20110411
  Serious: Yes (Death)
  Sender: FDA-Public Use
  Company Number: US-ACTELION-A-US2010-41907

PATIENT

DRUGS (3)
  1. BOSENTAN TABLET UNKNOWN US MG [Suspect]
     Indication: PULMONARY ARTERIAL HYPERTENSION
     Dosage: UNK
     Route: 048
     Dates: start: 20100205, end: 20100920
  2. VIAGRA [Concomitant]
  3. COUMADIN [Concomitant]

REACTIONS (2)
  - CARDIOMYOPATHY [None]
  - TRICUSPID VALVE REPAIR [None]
